FAERS Safety Report 9513553 (Version 1)
Quarter: 2013Q1

REPORT INFORMATION
  Report Type: Spontaneous
  Country: US (occurrence: None)
  Receive Date: 20130305
  Receipt Date: 20130305
  Transmission Date: 20140127
  Serious: Yes (Other)
  Sender: FDA-Public Use
  Company Number: 163-21880-12110091

PATIENT
  Age: 75 Year
  Sex: Male

DRUGS (21)
  1. REVLIMID [Suspect]
     Indication: PLASMA CELL MYELOMA
     Dosage: 21 IN 21 D
     Route: 048
     Dates: start: 20120126
  2. VITAMIN B1 [Concomitant]
  3. VITAMIN D [Concomitant]
  4. VITAMIN B [Concomitant]
  5. VITAMIN B12 [Concomitant]
  6. LYCOPENE [Concomitant]
  7. DEXAMETHASONE [Concomitant]
  8. LYRICA [Concomitant]
  9. AZITHROMYCIN [Concomitant]
  10. FENOFIBRATE [Concomitant]
  11. CIPROFLOXACIN [Concomitant]
  12. METOPROLOL [Concomitant]
  13. CRESTOR [Concomitant]
  14. OMEPRAZOLE [Concomitant]
  15. FOLIC ACID [Concomitant]
  16. PRADAXA [Concomitant]
  17. ANTIOXIDANT [Concomitant]
  18. COQ10 [Concomitant]
  19. ASTAXANTHIN [Concomitant]
  20. ALPHA LIPOIC ACID [Concomitant]
  21. L-CYSTEINE [Concomitant]

REACTIONS (5)
  - Hypotension [None]
  - Syncope [None]
  - Accidental overdose [None]
  - No adverse event [None]
  - Dizziness [None]
